FAERS Safety Report 15417809 (Version 1)
Quarter: 2018Q3

REPORT INFORMATION
  Report Type: Spontaneous
  Country: US (occurrence: US)
  Receive Date: 20180917
  Receipt Date: 20180917
  Transmission Date: 20181010
  Serious: Yes (Hospitalization)
  Sender: FDA-Public Use
  Company Number: None

PATIENT
  Age: 45 Year
  Sex: Male
  Weight: 75.2 kg

DRUGS (2)
  1. CISPLATIN. [Suspect]
     Active Substance: CISPLATIN
     Dates: end: 20141230
  2. 5?FLUOROURACIL (5?FU) [Suspect]
     Active Substance: FLUOROURACIL
     Dates: end: 20150103

REACTIONS (10)
  - Nasopharyngitis [None]
  - Middle ear disorder [None]
  - Sinus disorder [None]
  - Tympanic membrane disorder [None]
  - Mastoid effusion [None]
  - Deafness unilateral [None]
  - Ear congestion [None]
  - Middle ear inflammation [None]
  - Viral infection [None]
  - Middle ear effusion [None]

NARRATIVE: CASE EVENT DATE: 20180823
